FAERS Safety Report 26025697 (Version 1)
Quarter: 2025Q4

REPORT INFORMATION
  Report Type: Spontaneous
  Country: EU (occurrence: EU)
  Receive Date: 20251111
  Receipt Date: 20251111
  Transmission Date: 20260117
  Serious: Yes (Death, Hospitalization, Other)
  Sender: SANDOZ
  Company Number: None

PATIENT
  Age: 66 Year
  Sex: Male

DRUGS (2)
  1. DOCETAXEL [Suspect]
     Active Substance: DOCETAXEL
     Indication: Prostate cancer
     Dosage: UNK
     Route: 042
  2. ZOLEDRONIC ACID [Suspect]
     Active Substance: ZOLEDRONIC ACID
     Indication: Prostate cancer
     Dosage: UNK
     Route: 065

REACTIONS (9)
  - Thrombotic thrombocytopenic purpura [Fatal]
  - Haemolytic uraemic syndrome [Fatal]
  - Renal failure [Fatal]
  - Mental status changes [Fatal]
  - Haemolysis [Fatal]
  - Fatigue [Fatal]
  - Normocytic anaemia [Fatal]
  - Red blood cell schistocytes present [Unknown]
  - Blood creatinine increased [Unknown]
